FAERS Safety Report 17455329 (Version 1)
Quarter: 2020Q1

REPORT INFORMATION
  Report Type: Spontaneous
  Country: US (occurrence: US)
  Receive Date: 20200225
  Receipt Date: 20200225
  Transmission Date: 20200409
  Serious: No
  Sender: FDA-Public Use
  Company Number: US-MACLEODS PHARMACEUTICALS US LTD-MAC2020025315

PATIENT

DRUGS (1)
  1. TOLTERODINE TARTRATE 2 MG [Suspect]
     Active Substance: TOLTERODINE TARTRATE
     Indication: PRODUCT USED FOR UNKNOWN INDICATION
     Dosage: 2 MILLIGRAM, TOLTERIDONE TARTRATE
     Route: 065

REACTIONS (2)
  - Feeling abnormal [Unknown]
  - Product quality issue [Unknown]
